FAERS Safety Report 16608764 (Version 1)
Quarter: 2019Q3

REPORT INFORMATION
  Report Type: Spontaneous
  Country: TR (occurrence: TR)
  Receive Date: 20190722
  Receipt Date: 20190722
  Transmission Date: 20191004
  Serious: Yes (Other)
  Sender: FDA-Public Use
  Company Number: TR-TEVA-2019-TR-1081500

PATIENT
  Age: 1 Year
  Sex: Female

DRUGS (2)
  1. MYCOPHENOLATE MOFETIL. [Suspect]
     Active Substance: MYCOPHENOLATE MOFETIL
     Indication: IMMUNOSUPPRESSANT DRUG THERAPY
     Route: 065
  2. TACROLIMUS. [Suspect]
     Active Substance: TACROLIMUS
     Indication: IMMUNOSUPPRESSANT DRUG THERAPY
     Route: 065

REACTIONS (6)
  - Duodenitis [Recovered/Resolved]
  - Dermatitis atopic [Unknown]
  - Anaphylactic reaction [Unknown]
  - Hypoalbuminaemia [Unknown]
  - Eosinophilic oesophagitis [Recovered/Resolved]
  - Renal tubular acidosis [Recovered/Resolved]
